FAERS Safety Report 21459473 (Version 1)
Quarter: 2022Q4

REPORT INFORMATION
  Report Type: Spontaneous
  Country: US (occurrence: None)
  Receive Date: 20221014
  Receipt Date: 20221014
  Transmission Date: 20230113
  Serious: Yes (Hospitalization)
  Sender: FDA-Public Use
  Company Number: None

PATIENT
  Age: 64 Year
  Sex: Female
  Weight: 70.65 kg

DRUGS (1)
  1. PLENVU [Suspect]
     Active Substance: ASCORBIC ACID\POLYETHYLENE GLYCOL 3350\POTASSIUM CHLORIDE\SODIUM ASCORBATE\SODIUM CHLORIDE\SODIUM SU
     Indication: Colonoscopy
     Dosage: OTHER QUANTITY : 2 N/A;?OTHER FREQUENCY : OTHER;?
     Route: 048
     Dates: start: 20221011, end: 20221011

REACTIONS (6)
  - Vomiting [None]
  - Disorientation [None]
  - Asthenia [None]
  - Nausea [None]
  - Electrolyte imbalance [None]
  - Dehydration [None]

NARRATIVE: CASE EVENT DATE: 20221011
